FAERS Safety Report 8013795-5 (Version None)
Quarter: 2011Q4

REPORT INFORMATION
  Report Type: 
  Country: None (occurrence: None)
  Receive Date: 20111229
  Receipt Date: 20111220
  Transmission Date: 20120403
  Serious: Yes (Other)
  Sender: FDA-Public Use
  Company Number: CA-ASTRAZENECA-2011SE78184

PATIENT
  Age: 32 Year
  Sex: Male

DRUGS (2)
  1. SEROQUEL XR [Suspect]
     Indication: PSYCHOTIC DISORDER
     Route: 048
  2. SEROQUEL XR [Suspect]
     Route: 048

REACTIONS (2)
  - MEDICATION RESIDUE [None]
  - FREQUENT BOWEL MOVEMENTS [None]
